FAERS Safety Report 5091584-1 (Version None)
Quarter: 2006Q3

REPORT INFORMATION
  Report Type: 
  Country: None (occurrence: None)
  Receive Date: 20060829
  Receipt Date: 20060808
  Transmission Date: 20061208
  Serious: Yes (Hospitalization)
  Sender: FDA-Public Use
  Company Number: DK-AVENTIS-200618260GDDC

PATIENT
  Age: 70 Year
  Sex: Male

DRUGS (5)
  1. DOCETAXEL [Suspect]
     Indication: PROSTATE CANCER
     Route: 042
     Dates: start: 20060426, end: 20060721
  2. ISODUR [Concomitant]
  3. CENTYL [Concomitant]
  4. MAREVAN [Concomitant]
  5. B-COMBIN FORTE TABLET [Concomitant]

REACTIONS (2)
  - ABDOMINAL PAIN [None]
  - INFECTED LYMPHOCELE [None]
